FAERS Safety Report 6272756-7 (Version None)
Quarter: 2009Q3

REPORT INFORMATION
  Report Type: 
  Country: None (occurrence: None)
  Receive Date: 20090716
  Receipt Date: 20090716
  Transmission Date: 20100115
  Serious: No
  Sender: FDA-Public Use
  Company Number: None

PATIENT
  Age: 64 Year
  Sex: Female
  Weight: 72.5755 kg

DRUGS (1)
  1. LEVAQUIN [Suspect]
     Dosage: 1 PER DAY

REACTIONS (3)
  - BURSITIS [None]
  - CHEMICAL BURN OF SKIN [None]
  - MUSCULOSKELETAL PAIN [None]
